FAERS Safety Report 10050546 (Version 1)
Quarter: 2014Q2

REPORT INFORMATION
  Report Type: Spontaneous
  Country: US (occurrence: US)
  Receive Date: 20140401
  Receipt Date: 20140401
  Transmission Date: 20141212
  Serious: No
  Sender: FDA-Public Use
  Company Number: US-ASTRAZENECA-2013SE82104

PATIENT
  Age: 51 Year
  Sex: Female
  Weight: 65.8 kg

DRUGS (4)
  1. NEXIUM [Suspect]
     Indication: GASTROOESOPHAGEAL REFLUX DISEASE
     Route: 048
     Dates: start: 2005
  2. DULERA [Concomitant]
     Indication: ASTHMA
     Dosage: UNKNOWN 2 PUFFS BID
     Route: 055
     Dates: start: 2010
  3. NEBULIZER TREATMENT [Concomitant]
     Indication: ASTHMA
     Dosage: UNKNOWN PRN
     Route: 055
     Dates: start: 1976
  4. SOME OVER THE COUNTER MEDICATIONS [Concomitant]

REACTIONS (2)
  - Dyspepsia [Unknown]
  - Drug dose omission [Unknown]
